FAERS Safety Report 8309478-4 (Version None)
Quarter: 2012Q2

REPORT INFORMATION
  Report Type: 
  Country: None (occurrence: None)
  Receive Date: 20120425
  Receipt Date: 20120421
  Transmission Date: 20120825
  Serious: No
  Sender: FDA-Public Use
  Company Number: US-PFIZER INC-2012098690

PATIENT
  Age: 70 Year
  Sex: Male
  Weight: 100 kg

DRUGS (1)
  1. ALAVERT [Suspect]
     Indication: COUGH
     Dosage: UNK, ONCE IN THE MORNING
     Route: 048
     Dates: start: 20120420, end: 20120421

REACTIONS (4)
  - COUGH [None]
  - DRUG INEFFECTIVE [None]
  - INSOMNIA [None]
  - MALAISE [None]
